FAERS Safety Report 16895385 (Version 1)
Quarter: 2019Q4

REPORT INFORMATION
  Report Type: Spontaneous
  Country: US (occurrence: US)
  Receive Date: 20191007
  Receipt Date: 20191007
  Transmission Date: 20200122
  Serious: Yes (Other)
  Sender: FDA-Public Use
  Company Number: None

PATIENT
  Age: 88 Year
  Sex: Female
  Weight: 48.15 kg

DRUGS (13)
  1. IBRANCE [Suspect]
     Active Substance: PALBOCICLIB
     Indication: BREAST CANCER
     Route: 048
     Dates: start: 20190604
  2. IBRANCE [Suspect]
     Active Substance: PALBOCICLIB
     Indication: BONE CANCER
     Route: 048
     Dates: start: 20190604
  3. ELIQUIS [Concomitant]
     Active Substance: APIXABAN
  4. AMLODIPINE [Concomitant]
     Active Substance: AMLODIPINE BESYLATE
  5. FISH OIL [Concomitant]
     Active Substance: FISH OIL
  6. LETROZOLE. [Concomitant]
     Active Substance: LETROZOLE
  7. VITAMIN B12 [Concomitant]
     Active Substance: CYANOCOBALAMIN
  8. METOPROLOL TARTRATE. [Concomitant]
     Active Substance: METOPROLOL TARTRATE
  9. LIOTHYRONINE [Concomitant]
     Active Substance: LIOTHYRONINE
  10. VITAMIN D [Concomitant]
     Active Substance: VITAMIN D NOS
  11. PRESERVISION AREDS 2 [Concomitant]
     Active Substance: MINERALS\VITAMINS
  12. COENZYME Q10 [Concomitant]
     Active Substance: UBIDECARENONE
  13. SYNTHROID [Concomitant]
     Active Substance: LEVOTHYROXINE SODIUM

REACTIONS (1)
  - White blood cell count decreased [None]
